FAERS Safety Report 8784299 (Version 2)
Quarter: 2012Q4

REPORT INFORMATION
  Report Type: 
  Country: US (occurrence: US)
  Receive Date: 20120913
  Receipt Date: 20121012
  Transmission Date: 20130627
  Serious: No
  Sender: FDA-Public Use
  Company Number: US-PFIZER INC-2012225984

PATIENT
  Age: 69 Year
  Sex: Female
  Weight: 77.1 kg

DRUGS (18)
  1. LYRICA [Suspect]
     Indication: NEURALGIA
     Dosage: 50 mg, 1x/day
     Route: 048
     Dates: start: 200802, end: 200803
  2. LYRICA [Suspect]
     Indication: PAIN IN EXTREMITY
     Dosage: 25 mg, 1x/day
     Route: 048
     Dates: start: 20120910
  3. LYRICA [Suspect]
     Dosage: 4-5mg every 1-3 nights. (Take 1 in the evening)
  4. MAXZIDE [Concomitant]
     Indication: HYPERTENSION
     Dosage: 37.5-25mg, 1x/day
     Route: 048
  5. ATENOLOL [Concomitant]
     Indication: HYPERTENSION
     Dosage: 100 mg, 2x/day (50mg 2 tablet twice daily)
     Route: 048
  6. CYANOCOBALAMIN [Concomitant]
     Dosage: 1000 ug/ml, UNK
  7. EPIPEN [Concomitant]
     Dosage: 0.3mg/0.3ml injection device
     Dates: start: 20110721
  8. GUAIFENESIN [Concomitant]
     Dosage: 400 mg, 2x/day
     Route: 048
  9. KLOR-CON [Concomitant]
     Dosage: 10 mEq, 2x/day
     Route: 048
     Dates: start: 20110909
  10. LEVOTHYROXINE SODIUM [Concomitant]
     Dosage: 100 ug, 1x/day
     Route: 048
  11. LIDODERM PATCH [Concomitant]
     Dosage: UNK
     Dates: start: 20120210
  12. MONUROL [Concomitant]
     Dosage: 3 g, UNK
     Route: 048
     Dates: start: 20120904
  13. NASONEX [Concomitant]
     Dosage: 50mcg/Act, as directed
  14. NYSTOP [Concomitant]
     Dosage: 100000 Unit/gm, UNK
     Dates: start: 20120301
  15. VITAMIN D [Concomitant]
     Dosage: 1000 IU, 1x/day
     Route: 048
  16. ZYRTEC [Concomitant]
     Indication: HYPERSENSITIVITY
     Dosage: 10 mg, UNK
     Route: 048
  17. LIDOCAINE-PRILOCAINE [Concomitant]
     Indication: PAIN IN EXTREMITY
     Dosage: 2.5-2.5% Every 6hrs
     Dates: start: 20080916
  18. FENTANYL [Concomitant]
     Indication: BACK PAIN
     Dosage: 12.5 ug, UNK
     Dates: start: 200802, end: 200812

REACTIONS (4)
  - Dizziness [Unknown]
  - Asthenia [Unknown]
  - Gait disturbance [Unknown]
  - Feeling abnormal [Recovered/Resolved]
